FAERS Safety Report 19409918 (Version 2)
Quarter: 2021Q3

REPORT INFORMATION
  Report Type: Spontaneous
  Country: US (occurrence: US)
  Receive Date: 20210614
  Receipt Date: 20210915
  Transmission Date: 20211014
  Serious: No
  Sender: FDA-Public Use
  Company Number: US-THERATECHNOLOGIES INC.-2021-THE-IBA-000161

PATIENT
  Age: 64 Year
  Sex: Male

DRUGS (1)
  1. TROGARZO [Suspect]
     Active Substance: IBALIZUMAB-UIYK
     Indication: PRODUCT USED FOR UNKNOWN INDICATION
     Route: 042

REACTIONS (9)
  - Vomiting [Unknown]
  - Abdominal pain upper [Unknown]
  - Poor quality sleep [Unknown]
  - Diarrhoea [Unknown]
  - Viral load increased [Unknown]
  - Feeling abnormal [Unknown]
  - Nausea [Unknown]
  - Decreased appetite [Unknown]
  - Stress [Unknown]

NARRATIVE: CASE EVENT DATE: 20210514
